FAERS Safety Report 8984825 (Version 1)
Quarter: 2012Q4

REPORT INFORMATION
  Report Type: 
  Country: DE (occurrence: DE)
  Receive Date: 20121225
  Receipt Date: 20121225
  Transmission Date: 20130627
  Serious: Yes (Other)
  Sender: FDA-Public Use
  Company Number: DE-JNJFOC-20121209971

PATIENT
  Sex: Male

DRUGS (1)
  1. XARELTO [Suspect]
     Indication: PRODUCT USED FOR UNKNOWN INDICATION
     Route: 048

REACTIONS (6)
  - Suicidal ideation [Recovering/Resolving]
  - Renal function test abnormal [Recovering/Resolving]
  - Liver function test abnormal [Recovering/Resolving]
  - Dry eye [Recovering/Resolving]
  - Epistaxis [Recovering/Resolving]
  - Dizziness [Recovering/Resolving]
